FAERS Safety Report 15327208 (Version 2)
Quarter: 2018Q4

REPORT INFORMATION
  Report Type: Report from Study
  Country: None (occurrence: US)
  Receive Date: 20180828
  Receipt Date: 20181208
  Transmission Date: 20190204
  Serious: Yes (Other)
  Sender: FDA-Public Use
  Company Number: US-ABBVIE-18K-163-2462881-00

PATIENT
  Age: 26 Year
  Sex: Male

DRUGS (1)
  1. HUMIRA [Suspect]
     Active Substance: ADALIMUMAB
     Indication: CROHN^S DISEASE
     Route: 058

REACTIONS (5)
  - Seizure [Unknown]
  - Needle issue [Unknown]
  - Incorrect dose administered [Unknown]
  - Syncope [Unknown]
  - Tremor [Unknown]

NARRATIVE: CASE EVENT DATE: 2018
